FAERS Safety Report 13414227 (Version 2)
Quarter: 2017Q2

REPORT INFORMATION
  Report Type: Spontaneous
  Country: IT (occurrence: IT)
  Receive Date: 20170407
  Receipt Date: 20170509
  Transmission Date: 20170830
  Serious: Yes (Hospitalization)
  Sender: FDA-Public Use
  Company Number: IT-PFIZER INC-2017150708

PATIENT
  Age: 35 Year
  Sex: Male

DRUGS (1)
  1. LYRICA [Suspect]
     Active Substance: PREGABALIN
     Dosage: 6 DF, TOTAL
     Route: 048

REACTIONS (5)
  - Overdose [Unknown]
  - Nystagmus [Unknown]
  - Agitation [Unknown]
  - Intentional self-injury [Unknown]
  - Vertigo [Unknown]

NARRATIVE: CASE EVENT DATE: 20170404
